FAERS Safety Report 10099020 (Version 1)
Quarter: 2014Q2

REPORT INFORMATION
  Report Type: Spontaneous
  Country: JP (occurrence: JP)
  Receive Date: 20140423
  Receipt Date: 20140423
  Transmission Date: 20141212
  Serious: Yes (Hospitalization)
  Sender: FDA-Public Use
  Company Number: JP-PFIZER INC-2014109818

PATIENT
  Age: 49 Year
  Sex: Female
  Weight: 53 kg

DRUGS (2)
  1. BANAN [Suspect]
     Indication: HYPERTHERMIA
     Dosage: 100 MG, 3X/DAY
     Route: 048
     Dates: start: 20140310, end: 20140311
  2. ISCOTIN [Suspect]
     Indication: TUBERCULOSIS
     Dosage: 300 MG, 1X/DAY
     Route: 048
     Dates: start: 20140225, end: 20140330

REACTIONS (3)
  - Hepatic function abnormal [Unknown]
  - Swelling [Unknown]
  - Pruritus [Unknown]
